FAERS Safety Report 10157107 (Version 1)
Quarter: 2014Q2

REPORT INFORMATION
  Report Type: Spontaneous
  Country: BR (occurrence: BR)
  Receive Date: 20140507
  Receipt Date: 20140507
  Transmission Date: 20141212
  Serious: Yes (Other)
  Sender: FDA-Public Use
  Company Number: BR-MPIJNJ-2014JNJ003193

PATIENT
  Sex: 0

DRUGS (4)
  1. VELCADE [Suspect]
     Indication: PLASMA CELL MYELOMA
     Dosage: UNK
     Route: 065
     Dates: start: 2013
  2. VELCADE [Suspect]
     Dosage: UNK
     Route: 065
     Dates: start: 201402
  3. THALIDOMIDE [Concomitant]
     Dosage: UNK
  4. DEXAMETHASONE [Concomitant]
     Dosage: UNK

REACTIONS (2)
  - Transplant [Unknown]
  - Burning sensation [Recovering/Resolving]
